FAERS Safety Report 11744322 (Version 1)
Quarter: 2015Q4

REPORT INFORMATION
  Report Type: Spontaneous
  Country: US (occurrence: US)
  Receive Date: 20151116
  Receipt Date: 20151116
  Transmission Date: 20160304
  Serious: Yes (Death)
  Sender: FDA-Public Use
  Company Number: US-INSYS THERAPEUTICS, INC-INS201511-000489

PATIENT
  Age: 50 Year
  Sex: Male

DRUGS (1)
  1. SUBSYS [Suspect]
     Active Substance: FENTANYL
     Indication: BREAKTHROUGH PAIN
     Dates: start: 20150520, end: 20150927

REACTIONS (2)
  - Neoplasm progression [Fatal]
  - Gastric cancer [None]

NARRATIVE: CASE EVENT DATE: 20150927
